FAERS Safety Report 9248877 (Version 1)
Quarter: 2013Q2

REPORT INFORMATION
  Report Type: Spontaneous
  Country: NO (occurrence: NO)
  Receive Date: 20130423
  Receipt Date: 20130423
  Transmission Date: 20140414
  Serious: Yes (Other)
  Sender: FDA-Public Use
  Company Number: NO-ELI_LILLY_AND_COMPANY-NO201304004179

PATIENT
  Age: 18 Year
  Sex: Female
  Weight: 47 kg

DRUGS (1)
  1. STRATTERA [Suspect]
     Indication: ATTENTION DEFICIT/HYPERACTIVITY DISORDER
     Dosage: UNK UNK, BID
     Dates: start: 201109, end: 201112

REACTIONS (8)
  - Suicidal ideation [Recovered/Resolved]
  - Hallucination [Recovered/Resolved]
  - Depression [Recovering/Resolving]
  - Indifference [Recovered/Resolved]
  - Anger [Recovered/Resolved]
  - Indifference [Recovered/Resolved with Sequelae]
  - Personality disorder [Recovered/Resolved]
  - Drug dependence [Recovering/Resolving]
